FAERS Safety Report 24911411 (Version 3)
Quarter: 2025Q1

REPORT INFORMATION
  Report Type: Spontaneous
  Country: JP (occurrence: JP)
  Receive Date: 20250131
  Receipt Date: 20250314
  Transmission Date: 20250408
  Serious: Yes (Other)
  Sender: AMGEN
  Company Number: JP-AMGEN-JPNSP2024219371

PATIENT
  Age: 79 Year
  Sex: Male
  Weight: 61 kg

DRUGS (6)
  1. LUMAKRAS [Suspect]
     Active Substance: SOTORASIB
     Indication: Non-small cell lung cancer
     Route: 048
     Dates: start: 20240913, end: 20240926
  2. LUMAKRAS [Suspect]
     Active Substance: SOTORASIB
     Route: 048
     Dates: start: 20241008, end: 20241105
  3. LUMAKRAS [Suspect]
     Active Substance: SOTORASIB
     Route: 048
     Dates: start: 20241118
  4. MAGNESIUM OXIDE [Concomitant]
     Active Substance: MAGNESIUM OXIDE
     Dates: start: 20241008, end: 20241119
  5. MIYA-BM [Concomitant]
     Active Substance: CLOSTRIDIUM BUTYRICUM SPORES STRAIN M-55
     Indication: Diarrhoea
     Dates: start: 20250204
  6. LOPERAMIDE [Concomitant]
     Active Substance: LOPERAMIDE
     Indication: Diarrhoea
     Dates: start: 20250204

REACTIONS (5)
  - Pericarditis malignant [Unknown]
  - Alanine aminotransferase increased [Recovered/Resolved]
  - Aspartate aminotransferase increased [Recovered/Resolved]
  - Pericardial effusion malignant [Unknown]
  - Jaundice [Unknown]

NARRATIVE: CASE EVENT DATE: 20241002
